FAERS Safety Report 6983518-7 (Version None)
Quarter: 2010Q3

REPORT INFORMATION
  Report Type: 
  Country: None (occurrence: None)
  Receive Date: 20100914
  Receipt Date: 20080728
  Transmission Date: 20110219
  Serious: No
  Sender: FDA-Public Use
  Company Number: US-WYE-H05288108

PATIENT
  Sex: Female

DRUGS (1)
  1. ADVIL LIQUI-GELS [Suspect]
     Indication: ARTHRITIS
     Dosage: 4 TABLETS TWICE DAILY PER PHYSICIAN RECOMMENDATION
     Route: 048
     Dates: start: 20080401

REACTIONS (3)
  - AMNESIA [None]
  - CHEST DISCOMFORT [None]
  - FEELING ABNORMAL [None]
